FAERS Safety Report 8291398-5 (Version None)
Quarter: 2012Q2

REPORT INFORMATION
  Report Type: 
  Country: None (occurrence: None)
  Receive Date: 20120417
  Receipt Date: 20120329
  Transmission Date: 20120825
  Serious: Yes (Other)
  Sender: FDA-Public Use
  Company Number: JP-GLAXOSMITHKLINE-B0792779A

PATIENT
  Age: 58 Year
  Sex: Female
  Weight: 65 kg

DRUGS (5)
  1. ZYPREXA [Concomitant]
     Route: 048
  2. UNKNOWN DRUG [Suspect]
     Route: 048
     Dates: start: 20120226, end: 20120301
  3. UNKNOWN DRUG [Suspect]
     Indication: INFLUENZA
     Route: 048
     Dates: start: 20120226, end: 20120301
  4. LAMICTAL [Suspect]
     Indication: BIPOLAR II DISORDER
     Dosage: 50MG PER DAY
     Route: 048
     Dates: start: 20120204, end: 20120218
  5. LAMICTAL [Suspect]
     Dosage: 100MG PER DAY
     Route: 048
     Dates: start: 20120218, end: 20120301

REACTIONS (6)
  - HEADACHE [None]
  - CONJUNCTIVAL HYPERAEMIA [None]
  - MUCOSAL HYPERAEMIA [None]
  - PYREXIA [None]
  - RASH GENERALISED [None]
  - DRUG ERUPTION [None]
